FAERS Safety Report 13256384 (Version 1)
Quarter: 2017Q1

REPORT INFORMATION
  Report Type: Spontaneous
  Country: AU (occurrence: AU)
  Receive Date: 20170221
  Receipt Date: 20170221
  Transmission Date: 20170428
  Serious: Yes (Other)
  Sender: FDA-Public Use
  Company Number: AU-009507513-1702AUS008766

PATIENT
  Age: 59 Year
  Sex: Male

DRUGS (2)
  1. ALENDRONATE SODIUM. [Suspect]
     Active Substance: ALENDRONATE SODIUM
     Indication: OSTEOPOROSIS
     Route: 048
  2. CALCITRIOL. [Concomitant]
     Active Substance: CALCITRIOL
     Indication: HYPERPARATHYROIDISM

REACTIONS (4)
  - Atypical femur fracture [Recovering/Resolving]
  - Low turnover osteopathy [Recovering/Resolving]
  - Periprosthetic fracture [Recovering/Resolving]
  - Lumbar vertebral fracture [Recovering/Resolving]
